FAERS Safety Report 8361483-8 (Version None)
Quarter: 2012Q2

REPORT INFORMATION
  Report Type: 
  Country: None (occurrence: None)
  Receive Date: 20120515
  Receipt Date: 20120511
  Transmission Date: 20120825
  Serious: Yes (Life-Threatening, Other)
  Sender: FDA-Public Use
  Company Number: MA-ROXANE LABORATORIES, INC.-2012-RO-01220RO

PATIENT
  Age: 54 Year
  Sex: Female

DRUGS (3)
  1. DOXORUBICIN HCL [Suspect]
     Indication: BREAST CANCER METASTATIC
  2. CYCLOPHOSPHAMIDE [Suspect]
     Indication: BREAST CANCER METASTATIC
  3. TAMOXIFEN CITRATE [Suspect]
     Indication: BREAST CANCER METASTATIC

REACTIONS (4)
  - INTRACRANIAL PRESSURE INCREASED [None]
  - CEREBRAL VENOUS THROMBOSIS [None]
  - METASTASES TO BONE [None]
  - CONTRALATERAL BREAST CANCER [None]
